FAERS Safety Report 6921026-X (Version None)
Quarter: 2010Q3

REPORT INFORMATION
  Report Type: 
  Country: None (occurrence: None)
  Receive Date: 20100812
  Receipt Date: 20100805
  Transmission Date: 20110219
  Serious: Yes (Hospitalization)
  Sender: FDA-Public Use
  Company Number: IT-PFIZER INC-2010077458

PATIENT
  Age: 72 Year
  Sex: Female

DRUGS (4)
  1. TORVAST [Suspect]
     Indication: DYSLIPIDAEMIA
     Dosage: 40 MG, 1X/DAY
     Route: 048
     Dates: start: 20070101, end: 20100410
  2. RAMIPRIL/HYDROCHLOROTHIAZIDE [Concomitant]
     Dosage: UNK
  3. LOBIVON [Concomitant]
     Dosage: UNK
  4. NOVORAPID [Concomitant]
     Dosage: UNK

REACTIONS (3)
  - ABDOMINAL PAIN [None]
  - PANCREATITIS ACUTE [None]
  - WEIGHT DECREASED [None]
